FAERS Safety Report 25804180 (Version 1)
Quarter: 2025Q3

REPORT INFORMATION
  Report Type: Spontaneous
  Country: EU (occurrence: EU)
  Receive Date: 20250915
  Receipt Date: 20250915
  Transmission Date: 20251021
  Serious: Yes (Death, Other)
  Sender: AMGEN
  Company Number: EU-AMGEN-NORSP2025181572

PATIENT

DRUGS (3)
  1. TRASTUZUMAB [Suspect]
     Active Substance: TRASTUZUMAB
     Indication: Invasive breast carcinoma
     Route: 065
  2. CYCLOPHOSPHAMIDE\EPIRUBICIN [Concomitant]
     Active Substance: CYCLOPHOSPHAMIDE\EPIRUBICIN
  3. SACUBITRIL\VALSARTAN [Concomitant]
     Active Substance: SACUBITRIL\VALSARTAN

REACTIONS (72)
  - Death [Fatal]
  - Deep vein thrombosis [Unknown]
  - Breast cancer [Unknown]
  - Cardiac dysfunction [Unknown]
  - Syncope [Unknown]
  - Arrhythmia [Unknown]
  - Cholecystitis [Unknown]
  - Hypothyroidism [Unknown]
  - Transient ischaemic attack [Unknown]
  - Pneumonia [Unknown]
  - Renal impairment [Unknown]
  - Muscle rupture [Unknown]
  - Embolism arterial [Unknown]
  - Poisoning [Unknown]
  - Thyroid cancer [Unknown]
  - Vestibular neuronitis [Unknown]
  - Vertigo [Unknown]
  - Urinary tract infection [Unknown]
  - Tachycardia [Unknown]
  - Ejection fraction decreased [Unknown]
  - Myalgia [Unknown]
  - Arthralgia [Unknown]
  - Viral infection [Unknown]
  - Hypotension [Unknown]
  - Headache [Unknown]
  - Rash [Unknown]
  - Dyspnoea [Unknown]
  - Oedema [Unknown]
  - Palpitations [Unknown]
  - Hypoacusis [Unknown]
  - Insomnia [Unknown]
  - Abdominal pain [Unknown]
  - Cough [Unknown]
  - Pyrexia [Unknown]
  - Gastritis [Unknown]
  - Haemorrhoids [Unknown]
  - Lymphoedema [Unknown]
  - Nausea [Unknown]
  - Tremor [Unknown]
  - Hypersensitivity [Unknown]
  - Back pain [Unknown]
  - Bursitis [Unknown]
  - Depression [Unknown]
  - Diarrhoea [Unknown]
  - Nail discolouration [Unknown]
  - Mucosal dryness [Unknown]
  - Eye infection [Unknown]
  - Gingivitis [Unknown]
  - Herpes zoster [Unknown]
  - Incontinence [Unknown]
  - Infection [Unknown]
  - Keratitis [Unknown]
  - Haemoglobin decreased [Unknown]
  - Mastitis [Unknown]
  - Nocturia [Unknown]
  - Chest pain [Unknown]
  - Orthopnoea [Unknown]
  - Periostitis [Unknown]
  - Phlebitis [Unknown]
  - Bleeding time [Unknown]
  - Heavy menstrual bleeding [Unknown]
  - Restless legs syndrome [Unknown]
  - Tinnitus [Unknown]
  - Tonsillitis [Unknown]
  - Vaginal haemorrhage [Unknown]
  - Weight increased [Unknown]
  - Neoplasm [Unknown]
  - Troponin increased [Unknown]
  - Paraesthesia [Unknown]
  - Seroma [Unknown]
  - Visual impairment [Unknown]
  - Blood test abnormal [Unknown]
